FAERS Safety Report 6259050-5 (Version None)
Quarter: 2009Q3

REPORT INFORMATION
  Report Type: 
  Country: None (occurrence: None)
  Receive Date: 20090707
  Receipt Date: 20090629
  Transmission Date: 20100115
  Serious: Yes (Other)
  Sender: FDA-Public Use
  Company Number: PHHY2009BR26835

PATIENT
  Sex: Female
  Weight: 85 kg

DRUGS (6)
  1. EXELON [Suspect]
     Indication: DEMENTIA ALZHEIMER'S TYPE
     Dosage: 1.5 MG, BID
     Route: 048
     Dates: start: 20090610, end: 20090615
  2. CALCIUM [Concomitant]
     Indication: BONE DISORDER
     Dosage: ONCE DAILY
     Route: 048
  3. ALENDRONIC ACID [Concomitant]
     Dosage: ONCE DAILY
     Route: 048
  4. ENALAPRIL [Concomitant]
     Indication: HYPERTENSION
     Dosage: 10 MG, QD
     Route: 048
  5. AKINETON [Concomitant]
     Indication: PARKINSON'S DISEASE
     Dosage: 1/2 TABLET DAILY
     Route: 048
     Dates: start: 20080901, end: 20090624
  6. LEXOTAN [Concomitant]
     Dosage: 1 TABLET/DAY
     Route: 048
     Dates: start: 20080901

REACTIONS (10)
  - ARTHRALGIA [None]
  - ASTHENIA [None]
  - CEREBROVASCULAR ACCIDENT [None]
  - CONFUSIONAL STATE [None]
  - CONSTIPATION [None]
  - HYPOKINESIA [None]
  - MUSCULAR WEAKNESS [None]
  - PAIN IN EXTREMITY [None]
  - SOMNOLENCE [None]
  - SPEECH DISORDER [None]
